FAERS Safety Report 9157716 (Version 2)
Quarter: 2013Q1

REPORT INFORMATION
  Report Type: Spontaneous
  Country: US (occurrence: US)
  Receive Date: 20130312
  Receipt Date: 20130319
  Transmission Date: 20140127
  Serious: Yes (Hospitalization)
  Sender: FDA-Public Use
  Company Number: US-GILEAD-2013-0071356

PATIENT
  Sex: Female

DRUGS (4)
  1. LETAIRIS [Suspect]
     Indication: PRODUCT USED FOR UNKNOWN INDICATION
     Dosage: 10 MG, QD
     Route: 048
     Dates: start: 20110808
  2. ADCIRCA [Concomitant]
  3. REMODULIN [Concomitant]
  4. REMODULIN [Concomitant]

REACTIONS (6)
  - Malaise [Unknown]
  - Syncope [Unknown]
  - Dyspnoea [Unknown]
  - Influenza [Unknown]
  - Regurgitation [Unknown]
  - Renal disorder [Unknown]
